FAERS Safety Report 17155480 (Version 1)
Quarter: 2019Q4

REPORT INFORMATION
  Report Type: Spontaneous
  Country: US (occurrence: US)
  Receive Date: 20191215
  Receipt Date: 20191215
  Transmission Date: 20200122
  Serious: No
  Sender: FDA-Public Use
  Company Number: NVSC2019US001039

PATIENT
  Age: 41 Year
  Sex: Female

DRUGS (5)
  1. PROCARBAZINE [Suspect]
     Active Substance: PROCARBAZINE
     Indication: T-CELL LYMPHOMA
     Route: 065
  2. VINCRISTINE [Suspect]
     Active Substance: VINCRISTINE
     Indication: T-CELL LYMPHOMA
     Route: 065
  3. RITUXIMAB. [Suspect]
     Active Substance: RITUXIMAB
     Indication: T-CELL LYMPHOMA
     Dosage: UNK
     Route: 065
  4. METHYLPREDNISOLONE. [Suspect]
     Active Substance: METHYLPREDNISOLONE
     Indication: T-CELL LYMPHOMA
     Route: 065
  5. METHOTREXATE. [Suspect]
     Active Substance: METHOTREXATE
     Indication: T-CELL LYMPHOMA
     Route: 065

REACTIONS (1)
  - Therapeutic response decreased [Unknown]
